FAERS Safety Report 16884901 (Version 2)
Quarter: 2019Q4

REPORT INFORMATION
  Report Type: Spontaneous
  Country: CN (occurrence: CN)
  Receive Date: 20191004
  Receipt Date: 20191018
  Transmission Date: 20200122
  Serious: Yes (Other)
  Sender: FDA-Public Use
  Company Number: CN-ASTRAZENECA-2019SF41028

PATIENT
  Age: 64 Year
  Sex: Female
  Weight: 55 kg

DRUGS (2)
  1. IRESSA [Suspect]
     Active Substance: GEFITINIB
     Indication: NON-SMALL CELL LUNG CANCER
     Route: 048
     Dates: start: 2014, end: 201907
  2. PROPOLIS [Concomitant]
     Active Substance: PROPOLIS WAX
     Indication: IMMUNE SYSTEM DISORDER
     Dosage: 6-7 CAPSULES A DAY
     Dates: start: 2014

REACTIONS (4)
  - Drug resistance [Unknown]
  - Blood test abnormal [Recovering/Resolving]
  - Malignant neoplasm progression [Unknown]
  - Metastases to central nervous system [Unknown]

NARRATIVE: CASE EVENT DATE: 201907
